FAERS Safety Report 23961425 (Version 2)
Quarter: 2024Q3

REPORT INFORMATION
  Report Type: Spontaneous
  Country: US (occurrence: US)
  Receive Date: 20240611
  Receipt Date: 20240715
  Transmission Date: 20241017
  Serious: No
  Sender: MYLAN
  Company Number: US-MYLANLABS-2024M1051082

PATIENT
  Weight: 65.77 kg

DRUGS (1)
  1. TYRVAYA [Suspect]
     Active Substance: VARENICLINE TARTRATE
     Indication: Dry eye
     Dosage: 0.03 MILLIGRAM, BID (TWO TIMES A DAY)
     Route: 045
     Dates: start: 20240415, end: 20240515

REACTIONS (4)
  - Nasal dryness [Recovered/Resolved]
  - Nasal pruritus [Recovered/Resolved]
  - Epistaxis [Recovered/Resolved]
  - Nasal mucosal disorder [Recovered/Resolved]

NARRATIVE: CASE EVENT DATE: 20240101
